FAERS Safety Report 13290443 (Version 1)
Quarter: 2017Q1

REPORT INFORMATION
  Report Type: Spontaneous
  Country: US (occurrence: US)
  Receive Date: 20170302
  Receipt Date: 20170302
  Transmission Date: 20170428
  Serious: No
  Sender: FDA-Public Use
  Company Number: US-PFIZER INC-2017092371

PATIENT
  Age: 44 Year
  Sex: Female
  Weight: 73.48 kg

DRUGS (10)
  1. LYRICA [Suspect]
     Active Substance: PREGABALIN
     Indication: NEURALGIA
     Dosage: 100 MG, 2X/DAY
     Dates: start: 201506
  2. METHOCARBAMOL. [Concomitant]
     Active Substance: METHOCARBAMOL
     Indication: OSTEOARTHRITIS
  3. TYLENOL [Concomitant]
     Active Substance: ACETAMINOPHEN
     Indication: FIBROMYALGIA
     Dosage: 1200 MG, 4X/DAY
     Route: 048
  4. BREVA [Concomitant]
     Active Substance: ALBUTEROL\IPRATROPIUM
     Indication: CHRONIC OBSTRUCTIVE PULMONARY DISEASE
     Dosage: 1 DF, 1X/DAY
  5. CARVEDILOL. [Concomitant]
     Active Substance: CARVEDILOL
     Indication: TACHYCARDIA
     Dosage: 25 MG, 2X/DAY
     Route: 048
  6. TRAMADOL. [Concomitant]
     Active Substance: TRAMADOL
     Indication: OSTEOARTHRITIS
     Dosage: 100 MG, 4X/DAY (50MG, 2 TABLETS FOUR TIMES A DAY, ORALLY)
     Route: 048
  7. METHOCARBAMOL. [Concomitant]
     Active Substance: METHOCARBAMOL
     Indication: MYALGIA
     Dosage: 1000 MG, 4X/DAY (500MG, TWO TABLETS TWICE A DAY).
     Route: 048
  8. MOTRIN [Concomitant]
     Active Substance: IBUPROFEN
     Indication: OSTEOARTHRITIS
     Dosage: 800 MG, 3X/DAY
     Route: 048
     Dates: start: 1998
  9. TYLENOL [Concomitant]
     Active Substance: ACETAMINOPHEN
     Indication: OSTEOARTHRITIS
  10. ALBUTEROL. [Concomitant]
     Active Substance: ALBUTEROL
     Indication: CHRONIC OBSTRUCTIVE PULMONARY DISEASE
     Dosage: 1 VIAL FOR EVERY FOUR HOURS AS NEEDED

REACTIONS (2)
  - Pain [Unknown]
  - Condition aggravated [Unknown]
